FAERS Safety Report 16675331 (Version 2)
Quarter: 2019Q3

REPORT INFORMATION
  Report Type: Spontaneous
  Country: JP (occurrence: JP)
  Receive Date: 20190806
  Receipt Date: 20190918
  Transmission Date: 20191004
  Serious: Yes (Life-Threatening, Hospitalization, Other)
  Sender: FDA-Public Use
  Company Number: JP-BRISTOL-MYERS SQUIBB COMPANY-BMS-2018-120189

PATIENT
  Age: 71 Year
  Sex: Male
  Weight: 51.8 kg

DRUGS (8)
  1. FAMOTIDINE. [Concomitant]
     Active Substance: FAMOTIDINE
     Indication: GASTRIC ULCER
     Dosage: 1 GRAM, Q12H
     Route: 065
     Dates: start: 20170206
  2. CYMBALTA [Concomitant]
     Active Substance: DULOXETINE HYDROCHLORIDE
     Indication: PRODUCT USED FOR UNKNOWN INDICATION
     Dosage: 40 MILLIGRAM
     Route: 050
     Dates: start: 20180301
  3. GOSHAJINKIGAN [Concomitant]
     Active Substance: HERBALS
     Indication: NEUROPATHY PERIPHERAL
     Dosage: 2.5 MILLIGRAM, Q8H
     Route: 065
     Dates: start: 20170831
  4. CYMBALTA [Concomitant]
     Active Substance: DULOXETINE HYDROCHLORIDE
     Indication: BACK PAIN
     Dosage: 40 MILLIGRAM, Q12H
     Route: 050
     Dates: start: 20170420, end: 20170810
  5. REBAMIPIDE [Concomitant]
     Active Substance: REBAMIPIDE
     Indication: GASTRIC ULCER
     Dosage: 100 MILLIGRAM, Q8H
     Route: 065
     Dates: start: 20150401
  6. CARBOCISTEINE [Concomitant]
     Active Substance: CARBOCYSTEINE
     Indication: BRONCHITIS CHRONIC
     Dosage: 1 GRAM, Q8H
     Route: 065
     Dates: start: 20170206
  7. MUCOSAL [AMBROXOL HYDROCHLORIDE] [Concomitant]
     Indication: BRONCHITIS CHRONIC
     Dosage: 1 GRAM, Q8H
     Route: 065
     Dates: start: 20150801
  8. OPDIVO [Suspect]
     Active Substance: NIVOLUMAB
     Indication: HEAD AND NECK CANCER
     Dosage: UNK
     Route: 041
     Dates: start: 20180118, end: 20181004

REACTIONS (5)
  - Pneumonia aspiration [Unknown]
  - Diarrhoea [Unknown]
  - Hypopituitarism [Recovered/Resolved with Sequelae]
  - Vomiting [Unknown]
  - Hypothyroidism [Recovered/Resolved with Sequelae]

NARRATIVE: CASE EVENT DATE: 20180507
